FAERS Safety Report 6219046-6 (Version None)
Quarter: 2009Q2

REPORT INFORMATION
  Report Type: 
  Country: None (occurrence: None)
  Receive Date: 20090608
  Receipt Date: 20090527
  Transmission Date: 20091009
  Serious: Yes (Other)
  Sender: FDA-Public Use
  Company Number: US-PFIZER INC-2009222244

PATIENT
  Sex: Male
  Weight: 104 kg

DRUGS (3)
  1. GEODON [Suspect]
     Indication: SCHIZOPHRENIA
  2. AMANTADINE [Concomitant]
     Dosage: UNK
  3. CELEXA [Concomitant]
     Dosage: UNK

REACTIONS (5)
  - ABNORMAL BEHAVIOUR [None]
  - COMMUNICATION DISORDER [None]
  - DRUG INEFFECTIVE [None]
  - PARANOIA [None]
  - SCHIZOPHRENIA [None]
